FAERS Safety Report 4311431-2 (Version None)
Quarter: 2004Q1

REPORT INFORMATION
  Report Type: 
  Country: None (occurrence: None)
  Receive Date: 20040303
  Receipt Date: 20040303
  Transmission Date: 20041129
  Serious: No
  Sender: FDA-Public Use
  Company Number: None

PATIENT
  Age: 53 Year
  Sex: Male

DRUGS (9)
  1. WARFARIN SODIUM [Suspect]
     Indication: HIP ARTHROPLASTY
     Dosage: 6MG PO DAILY
     Route: 048
  2. WARFARIN SODIUM [Suspect]
     Indication: KNEE ARTHROPLASTY
     Dosage: 6MG PO DAILY
     Route: 048
  3. PAROXETINE HCL [Suspect]
     Indication: DEPRESSION
     Dosage: 60 MG PO DAILY
     Route: 048
  4. INSULIN [Concomitant]
  5. PREDNISONE [Concomitant]
  6. OXYCONTIN [Concomitant]
  7. IRON [Concomitant]
  8. ZINC SULFATE [Concomitant]
  9. VIT. C [Concomitant]

REACTIONS (4)
  - HAEMATOCRIT DECREASED [None]
  - HAEMOGLOBIN DECREASED [None]
  - INTERNATIONAL NORMALISED RATIO DECREASED [None]
  - INTERNATIONAL NORMALISED RATIO INCREASED [None]
